FAERS Safety Report 6706895-0 (Version None)
Quarter: 2010Q2

REPORT INFORMATION
  Report Type: 
  Country: None (occurrence: None)
  Receive Date: 20100503
  Receipt Date: 20100422
  Transmission Date: 20101027
  Serious: Yes (Other)
  Sender: FDA-Public Use
  Company Number: FR-JNJFOC-20100406211

PATIENT
  Age: 66 Year
  Sex: Female
  Weight: 55 kg

DRUGS (3)
  1. REMICADE [Suspect]
     Indication: CROHN'S DISEASE
     Route: 042
  2. FLAGYL [Suspect]
     Indication: ABDOMINAL PAIN
     Route: 048
  3. ENTOCORT EC [Concomitant]

REACTIONS (4)
  - ABDOMINAL PAIN [None]
  - PYREXIA [None]
  - RASH SCARLATINIFORM [None]
  - WEIGHT INCREASED [None]
